FAERS Safety Report 5083451-4 (Version None)
Quarter: 2006Q3

REPORT INFORMATION
  Report Type: 
  Country: None (occurrence: None)
  Receive Date: 20060816
  Receipt Date: 20060802
  Transmission Date: 20061208
  Serious: Yes (Hospitalization)
  Sender: FDA-Public Use
  Company Number: US-2005-021242

PATIENT
  Age: 50 Year
  Sex: Female

DRUGS (1)
  1. BETASERON [Suspect]
     Indication: RELAPSING-REMITTING MULTIPLE SCLEROSIS
     Dosage: SUBCUTANEOUS
     Route: 058
     Dates: start: 20010904, end: 20050901

REACTIONS (5)
  - COGNITIVE DISORDER [None]
  - COUGH [None]
  - MEMORY IMPAIRMENT [None]
  - OSTEONECROSIS [None]
  - RESPIRATORY TRACT CONGESTION [None]
